FAERS Safety Report 7882194 (Version 3)
Quarter: 2013Q1

REPORT INFORMATION
  Report Type: Spontaneous
  Country: US (occurrence: US)
  Receive Date: 20110401
  Receipt Date: 20130107
  Transmission Date: 20140127
  Serious: Yes (Other)
  Sender: FDA-Public Use
  Company Number: US-BAYER-2011-027396

PATIENT
  Age: 45 Year
  Sex: Female

DRUGS (8)
  1. YAZ [Suspect]
     Indication: PREMENSTRUAL DYSPHORIC DISORDER
     Dosage: UNK
     Dates: start: 2005, end: 2005
  2. YAZ [Suspect]
     Indication: PREMENSTRUAL SYNDROME
  3. NEXIUM [Concomitant]
     Indication: GASTROOESOPHAGEAL REFLUX DISEASE
     Dosage: 40 MG, QD
     Route: 048
     Dates: start: 20090102, end: 20090612
  4. CIPROFLOXACIN [Concomitant]
     Dosage: 500 MG, UNK
     Dates: start: 20090611
  5. NITRO [Concomitant]
     Dosage: UNK
     Dates: start: 20090611
  6. ASA [Concomitant]
     Dosage: 81 MG, UNK
     Dates: start: 20090611
  7. ASA [Concomitant]
     Dosage: 325 MG, UNK
  8. PYRIDIUM [Concomitant]
     Dosage: 200 MG, TID X 2 DAYS

REACTIONS (6)
  - Myocardial infarction [None]
  - Anxiety [None]
  - Emotional distress [None]
  - General physical health deterioration [None]
  - Pain [None]
  - Injury [None]
